FAERS Safety Report 21102727 (Version 4)
Quarter: 2022Q3

REPORT INFORMATION
  Report Type: Report from Study
  Country: DE (occurrence: DE)
  Receive Date: 20220720
  Receipt Date: 20220930
  Transmission Date: 20221027
  Serious: Yes (Hospitalization)
  Sender: FDA-Public Use
  Company Number: DE-ABBVIE-22K-062-4473227-00

PATIENT
  Sex: Male

DRUGS (2)
  1. CARBIDOPA\LEVODOPA [Suspect]
     Active Substance: CARBIDOPA\LEVODOPA
     Indication: Parkinson^s disease
     Dosage: MD 5.0ML; CRD 3.8ML/H; ED 1.5ML; KTN1.7ML/H CRN 1.7ML/H
     Route: 050
     Dates: start: 20220602, end: 202206
  2. CARBIDOPA\LEVODOPA [Suspect]
     Active Substance: CARBIDOPA\LEVODOPA
     Dosage: MD 5.0 ML; CRD 1.7 ML/H; CRN 3.8 L/H; ED 1.5 ML
     Route: 050
     Dates: start: 20220606

REACTIONS (4)
  - Urinary tract infection [Not Recovered/Not Resolved]
  - Cystitis [Unknown]
  - Blood test abnormal [Unknown]
  - Urinary retention [Unknown]

NARRATIVE: CASE EVENT DATE: 20220101
